FAERS Safety Report 4610406-3 (Version None)
Quarter: 2005Q2

REPORT INFORMATION
  Report Type: 
  Country: None (occurrence: None)
  Receive Date: 20050301
  Receipt Date: 20050107
  Transmission Date: 20051028
  Serious: No
  Sender: FDA-Public Use
  Company Number: WAES 0501USA00701

PATIENT
  Age: 44 Year
  Sex: Female

DRUGS (2)
  1. ZETIA [Suspect]
     Indication: BLOOD CHOLESTEROL INCREASED
     Dosage: 10 MG/DAILY/PO
     Route: 048
     Dates: start: 20040301, end: 20041001
  2. THERAPY UNSPECIFIED [Concomitant]

REACTIONS (1)
  - DRUG INEFFECTIVE [None]
